FAERS Safety Report 8536331 (Version 2)
Quarter: 2019Q3

REPORT INFORMATION
  Report Type: Spontaneous
  Country: DE (occurrence: DE)
  Receive Date: 20120430
  Receipt Date: 20190905
  Transmission Date: 20191005
  Serious: Yes (Death, Congenital Anomaly)
  Sender: FDA-Public Use
  Company Number: DE-UCBSA-055856

PATIENT
  Sex: Female

DRUGS (2)
  1. KEPPRA [Suspect]
     Active Substance: LEVETIRACETAM
     Indication: EPILEPSY
     Dosage: 1500 MG, 2X/DAY (BID)
     Route: 064
     Dates: start: 200912, end: 2010
  2. FOLIO FORTE [Concomitant]
     Active Substance: FOLIC ACID\VITAMINS
     Indication: NEURAL TUBE DEFECT
     Dosage: DAILY DOSE:0.8 MG
     Route: 064
     Dates: start: 200912, end: 2010

REACTIONS (6)
  - Heart disease congenital [Fatal]
  - Spina bifida [Not Recovered/Not Resolved]
  - Maternal exposure during pregnancy [Unknown]
  - Cleft lip and palate [Not Recovered/Not Resolved]
  - Spine malformation [Not Recovered/Not Resolved]
  - Congenital foot malformation [Not Recovered/Not Resolved]

NARRATIVE: CASE EVENT DATE: 200912
